FAERS Safety Report 25434133 (Version 1)
Quarter: 2025Q2

REPORT INFORMATION
  Report Type: Spontaneous
  Country: US (occurrence: US)
  Receive Date: 20250613
  Receipt Date: 20250613
  Transmission Date: 20250717
  Serious: No
  Sender: PFIZER
  Company Number: US-PFIZER INC-202500119802

PATIENT
  Age: 56 Year
  Sex: Male

DRUGS (2)
  1. BRAFTOVI [Suspect]
     Active Substance: ENCORAFENIB
     Indication: Malignant melanoma stage IV
     Dates: end: 20250515
  2. MEKTOVI [Suspect]
     Active Substance: BINIMETINIB
     Indication: Malignant melanoma stage IV
     Dates: end: 20250515

REACTIONS (2)
  - Rash [Unknown]
  - Prescription drug used without a prescription [Unknown]
